FAERS Safety Report 4788362-7 (Version None)
Quarter: 2005Q4

REPORT INFORMATION
  Report Type: 
  Country: None (occurrence: None)
  Receive Date: 20051005
  Receipt Date: 20050110
  Transmission Date: 20060501
  Serious: Yes (Hospitalization)
  Sender: FDA-Public Use
  Company Number: AT-BRISTOL-MYERS SQUIBB COMPANY-12819439

PATIENT
  Age: 72 Year
  Sex: Male

DRUGS (13)
  1. CETUXIMAB [Suspect]
     Indication: COLORECTAL CANCER METASTATIC
     Dosage: 2ND CYCLE, DELAYED/OMITTED DUE TO EVENTS, DATE OF 1ST INFUSION 03-DEC-04
     Route: 042
     Dates: start: 20041230, end: 20041230
  2. IRINOTECAN HCL [Suspect]
     Indication: COLORECTAL CANCER METASTATIC
     Dosage: 2ND CYCLE, DATE OF 1ST INFUSION 03-DEC-04
     Route: 042
     Dates: start: 20041223, end: 20041223
  3. ASPIRIN [Concomitant]
     Route: 048
  4. NICORANDIL [Concomitant]
     Route: 048
  5. PRAVASTATIN [Concomitant]
     Route: 048
  6. NITROGLYCERIN [Concomitant]
     Route: 062
  7. DISODIUM SELENITE [Concomitant]
     Route: 048
  8. ISORBIDE [Concomitant]
     Route: 048
  9. AMOXICILLIN [Concomitant]
     Route: 042
     Dates: end: 20041203
  10. AMOXICILLIN [Concomitant]
     Route: 048
     Dates: start: 20041204, end: 20041206
  11. CLAVULANIC ACID [Concomitant]
     Route: 042
     Dates: end: 20041203
  12. CLAVULANIC ACID [Concomitant]
     Route: 048
     Dates: start: 20041204, end: 20041206
  13. ONDANSETRON [Concomitant]
     Route: 048
     Dates: start: 20041204

REACTIONS (3)
  - ABDOMINAL PAIN [None]
  - DIARRHOEA [None]
  - ENTERITIS [None]
